FAERS Safety Report 6515356-3 (Version None)
Quarter: 2009Q4

REPORT INFORMATION
  Report Type: 
  Country: None (occurrence: None)
  Receive Date: 20091223
  Receipt Date: 20091214
  Transmission Date: 20100525
  Serious: Yes (Hospitalization)
  Sender: FDA-Public Use
  Company Number: EC-ROCHE-674238

PATIENT
  Sex: Female
  Weight: 53.5 kg

DRUGS (4)
  1. CAPECITABINE [Suspect]
     Indication: BREAST CANCER
     Route: 048
     Dates: start: 20090501
  2. PARACETAMOL [Concomitant]
     Indication: PAIN
     Route: 048
     Dates: start: 20090601
  3. OMEPRAZOLE [Concomitant]
     Indication: PROPHYLAXIS
     Route: 048
     Dates: start: 20090601
  4. TYKERB [Concomitant]
     Indication: BREAST CANCER
     Route: 048
     Dates: start: 20090501

REACTIONS (4)
  - BRAIN OEDEMA [None]
  - DIARRHOEA [None]
  - DRY MOUTH [None]
  - FALL [None]
